FAERS Safety Report 5346232-X (Version None)
Quarter: 2007Q2

REPORT INFORMATION
  Report Type: 
  Country: None (occurrence: None)
  Receive Date: 20070605
  Receipt Date: 20070523
  Transmission Date: 20071010
  Serious: Yes (Other)
  Sender: FDA-Public Use
  Company Number: DE-PURDUE-DEU_2007_0003348

PATIENT
  Age: 55 Year
  Sex: Male
  Weight: 107 kg

DRUGS (10)
  1. OXY/NALOX CR TABS VS OXY CR TABS [Suspect]
     Indication: CONSTIPATION
     Dosage: 70 MG, DAILY
     Route: 048
     Dates: start: 20070306, end: 20070515
  2. OXY/NALOX CR TABS VS OXY CR TABS [Suspect]
     Dosage: 60 MG, DAILY
     Route: 048
     Dates: start: 20070222, end: 20070305
  3. OXY/NALOX CR TABS VS OXY CR TABS [Suspect]
     Dosage: 30 MG, DAILY
     Route: 048
     Dates: start: 20070221, end: 20070221
  4. OXY/NALOX CR TABS VS OXY CR TABS [Suspect]
     Dosage: 30 MG, DAILY
     Route: 048
     Dates: start: 20070516, end: 20070516
  5. IBUPROFEN [Concomitant]
  6. OMEPRAZOLE [Concomitant]
  7. TRIMIPRAMINE MALEATE [Concomitant]
  8. OXYGESIC KAPSELN [Suspect]
     Indication: PAIN
     Route: 048
     Dates: start: 20070220
  9. OXYCODONE HCL / NALOXON HCL CR TAB [Suspect]
     Dosage: 70 MG, DAILY
     Route: 048
     Dates: start: 20070517
  10. OXYCODONE HCL / NALOXON HCL CR TAB [Suspect]
     Dosage: 40 MG, DAILY
     Route: 048
     Dates: start: 20070516, end: 20070516

REACTIONS (1)
  - BUNDLE BRANCH BLOCK RIGHT [None]
